APPROVED DRUG PRODUCT: FLUVOXAMINE MALEATE
Active Ingredient: FLUVOXAMINE MALEATE
Strength: 100MG
Dosage Form/Route: CAPSULE, EXTENDED RELEASE;ORAL
Application: A212182 | Product #002 | TE Code: AB
Applicant: BIONPHARMA INC
Approved: Sep 16, 2020 | RLD: No | RS: No | Type: RX